FAERS Safety Report 4338236-0 (Version None)
Quarter: 2004Q2

REPORT INFORMATION
  Report Type: 
  Country: None (occurrence: None)
  Receive Date: 20040414
  Receipt Date: 20030604
  Transmission Date: 20050107
  Serious: Yes (Death)
  Sender: FDA-Public Use
  Company Number: 12296075

PATIENT
  Age: 67 Year
  Sex: Male

DRUGS (3)
  1. LOMUSTINE [Suspect]
     Indication: SMALL CELL CARCINOMA
     Dates: start: 19830602, end: 19830602
  2. CYTOXAN [Suspect]
     Indication: SMALL CELL CARCINOMA
     Route: 042
     Dates: start: 19830602, end: 19830602
  3. METHOTREXATE [Suspect]
     Indication: SMALL CELL CARCINOMA
     Route: 042
     Dates: start: 19830602, end: 19830602

REACTIONS (3)
  - ACIDOSIS [None]
  - RESPIRATORY DISTRESS [None]
  - TUMOUR LYSIS SYNDROME [None]
